FAERS Safety Report 7960180-8 (Version None)
Quarter: 2011Q4

REPORT INFORMATION
  Report Type: 
  Country: None (occurrence: None)
  Receive Date: 20111206
  Receipt Date: 20111201
  Transmission Date: 20120403
  Serious: Yes (Hospitalization)
  Sender: FDA-Public Use
  Company Number: PHHY2011AR105603

PATIENT
  Sex: Male

DRUGS (1)
  1. QAB149 [Suspect]
     Indication: EMPHYSEMA
     Dosage: 1 DF, QD

REACTIONS (1)
  - GASTROINTESTINAL HAEMORRHAGE [None]
